FAERS Safety Report 16415807 (Version 2)
Quarter: 2020Q3

REPORT INFORMATION
  Report Type: Spontaneous
  Country: US (occurrence: US)
  Receive Date: 20190611
  Receipt Date: 20200728
  Transmission Date: 20201102
  Serious: No
  Sender: FDA-Public Use
  Company Number: US-SA-2019SA156647

PATIENT

DRUGS (1)
  1. DUPIXENT [Suspect]
     Active Substance: DUPILUMAB
     Indication: DERMATITIS ATOPIC
     Dosage: 300 MG/300MG/2ML
     Dates: start: 201801

REACTIONS (7)
  - Eye pruritus [Unknown]
  - Oral herpes [Unknown]
  - Eczema eyelids [Unknown]
  - Lacrimation increased [Unknown]
  - Eyelid irritation [Unknown]
  - Eye swelling [Unknown]
  - Ocular hyperaemia [Unknown]
